FAERS Safety Report 24264127 (Version 1)
Quarter: 2024Q3

REPORT INFORMATION
  Report Type: Spontaneous
  Country: US (occurrence: None)
  Receive Date: 20240828
  Receipt Date: 20240828
  Transmission Date: 20241017
  Serious: Yes (Disabling, Other)
  Sender: Public
  Company Number: None

PATIENT
  Age: 64 Year
  Sex: Male

DRUGS (1)
  1. JARDIANCE [Suspect]
     Active Substance: EMPAGLIFLOZIN
     Dates: start: 20240807, end: 20240828

REACTIONS (6)
  - Fungal infection [None]
  - Pruritus genital [None]
  - Penile erythema [None]
  - Penile swelling [None]
  - Penile burning sensation [None]
  - Candida infection [None]

NARRATIVE: CASE EVENT DATE: 20240827
